FAERS Safety Report 17582204 (Version 3)
Quarter: 2020Q2

REPORT INFORMATION
  Report Type: Spontaneous
  Country: US (occurrence: US)
  Receive Date: 20200325
  Receipt Date: 20200529
  Transmission Date: 20200713
  Serious: Yes (Hospitalization)
  Sender: FDA-Public Use
  Company Number: US-ACTELION-A-NJ2019-193088

PATIENT
  Sex: Male
  Weight: 79.37 kg

DRUGS (6)
  1. AMLODIPINE [Concomitant]
     Active Substance: AMLODIPINE BESYLATE
  2. UPTRAVI [Suspect]
     Active Substance: SELEXIPAG
     Dosage: 1600 MCG, BID
     Route: 048
  3. AMBRISENTAN [Concomitant]
     Active Substance: AMBRISENTAN
  4. ELIQUIS [Concomitant]
     Active Substance: APIXABAN
  5. UPTRAVI [Suspect]
     Active Substance: SELEXIPAG
     Indication: PULMONARY ARTERIAL HYPERTENSION
     Dosage: 1400 MCG, BID
     Route: 048
     Dates: end: 20200311
  6. ADCIRCA [Concomitant]
     Active Substance: TADALAFIL

REACTIONS (8)
  - Nausea [Unknown]
  - Diarrhoea [Unknown]
  - Headache [Unknown]
  - Muscle tightness [Unknown]
  - Chest pain [Unknown]
  - Myalgia [Unknown]
  - Pain in jaw [Unknown]
  - Dyspnoea [Unknown]
